FAERS Safety Report 25472348 (Version 1)
Quarter: 2025Q2

REPORT INFORMATION
  Report Type: Spontaneous
  Country: FR (occurrence: FR)
  Receive Date: 20250624
  Receipt Date: 20250624
  Transmission Date: 20250717
  Serious: Yes (Other)
  Sender: AUROBINDO
  Company Number: FR-AFSSAPS-RN2025000429

PATIENT
  Age: 85 Year
  Sex: Male

DRUGS (2)
  1. LEVOFLOXACIN [Suspect]
     Active Substance: LEVOFLOXACIN
     Indication: Arthritis infective
     Dosage: 750 MILLIGRAM, ONCE A DAY
     Route: 048
     Dates: start: 20250314, end: 20250502
  2. DOXYCYCLINE [Suspect]
     Active Substance: DOXYCYCLINE
     Indication: Arthritis infective
     Dosage: 2 DOSAGE FORM, ONCE A DAY(100 MG MORNING AND EVENING)
     Route: 048
     Dates: start: 20250307, end: 20250502

REACTIONS (2)
  - Cholestasis [Recovering/Resolving]
  - Hepatic cytolysis [Recovering/Resolving]

NARRATIVE: CASE EVENT DATE: 20250424
